FAERS Safety Report 4903351-7 (Version None)
Quarter: 2006Q1

REPORT INFORMATION
  Report Type: 
  Country: None (occurrence: None)
  Receive Date: 20060206
  Receipt Date: 20060206
  Transmission Date: 20060701
  Serious: Yes (Hospitalization)
  Sender: FDA-Public Use
  Company Number: None

PATIENT
  Age: 81 Year
  Sex: Male

DRUGS (2)
  1. FENTANYL [Suspect]
     Dosage: PATCH
  2. MORPHINE [Suspect]
     Dosage: 2 MG IV
     Route: 042

REACTIONS (7)
  - DEPRESSED LEVEL OF CONSCIOUSNESS [None]
  - DYSPNOEA [None]
  - HYPOTENSION [None]
  - MIOSIS [None]
  - PAIN [None]
  - RESPIRATORY RATE DECREASED [None]
  - SEPSIS [None]
